FAERS Safety Report 6782351-9 (Version None)
Quarter: 2010Q2

REPORT INFORMATION
  Report Type: 
  Country: None (occurrence: None)
  Receive Date: 20100621
  Receipt Date: 20100614
  Transmission Date: 20101027
  Serious: Yes (Other)
  Sender: FDA-Public Use
  Company Number: DK-JNJFOC-20100604699

PATIENT
  Sex: Female
  Weight: 73 kg

DRUGS (2)
  1. ITRACONAZOLE [Suspect]
     Indication: DRUG USE FOR UNKNOWN INDICATION
     Dosage: 1 TABLET A DAY FOR 14 DAYS
     Route: 048
  2. AZITHROMYCIN [Suspect]
     Indication: EAR INFECTION
     Route: 048

REACTIONS (11)
  - ABNORMAL FAECES [None]
  - BLOOD GLUCOSE DECREASED [None]
  - DIARRHOEA [None]
  - FATIGUE [None]
  - GLOSSODYNIA [None]
  - GOUTY ARTHRITIS [None]
  - HYPERHIDROSIS [None]
  - INCREASED APPETITE [None]
  - INFLUENZA LIKE ILLNESS [None]
  - VITAMIN D DEFICIENCY [None]
  - WEIGHT DECREASED [None]
